FAERS Safety Report 26069856 (Version 1)
Quarter: 2025Q4

REPORT INFORMATION
  Report Type: Spontaneous
  Country: US (occurrence: None)
  Receive Date: 20251119
  Receipt Date: 20251119
  Transmission Date: 20260117
  Serious: Yes (Life-Threatening, Hospitalization, Disabling, Other)
  Sender: FDA-CTU
  Company Number: None

PATIENT
  Age: 51 Year
  Sex: Female
  Weight: 80.1 kg

DRUGS (14)
  1. EXEMESTANE [Suspect]
     Active Substance: EXEMESTANE
     Indication: Breast cancer
     Dosage: OTHER QUANTITY : 30 TABLET(S);?
     Route: 048
     Dates: start: 20250303, end: 20250902
  2. TAMOXIFEN [Suspect]
     Active Substance: TAMOXIFEN
  3. Losartin 50mg [Concomitant]
  4. Asa 325 daily [Concomitant]
  5. Potassium 10meq [Concomitant]
  6. duloxetine hcl 90mg daily (60 + 30) [Concomitant]
  7. Lasix 20mg tab daily [Concomitant]
  8. Hydroxychloroquine 400mg daily [Concomitant]
  9. topiramate 150mg [Concomitant]
  10. TIZANIDINE [Concomitant]
     Active Substance: TIZANIDINE
  11. MTV [Concomitant]
  12. Calcium supplement 100mg [Concomitant]
  13. Magnesium 500mg [Concomitant]
  14. Vitamin B2 100mg [Concomitant]

REACTIONS (7)
  - Circulatory collapse [None]
  - Cerebrovascular accident [None]
  - Migraine [None]
  - Product communication issue [None]
  - Therapy cessation [None]
  - Grip strength decreased [None]
  - Cerebral artery thrombosis [None]

NARRATIVE: CASE EVENT DATE: 20250902
